FAERS Safety Report 14151587 (Version 3)
Quarter: 2018Q1

REPORT INFORMATION
  Report Type: Report from Study
  Country: US (occurrence: US)
  Receive Date: 20171102
  Receipt Date: 20180316
  Transmission Date: 20180508
  Serious: Yes (Other)
  Sender: FDA-Public Use
  Company Number: PHEH2017US034663

PATIENT
  Sex: Female

DRUGS (3)
  1. AFINITOR DISPERZ [Suspect]
     Active Substance: EVEROLIMUS
     Indication: ASTROCYTOMA, LOW GRADE
     Dosage: 2 MG, QD
     Route: 048
     Dates: start: 20170317
  2. AFINITOR DISPERZ [Suspect]
     Active Substance: EVEROLIMUS
     Dosage: 3 MG, QD
     Route: 048
  3. AFINITOR DISPERZ [Suspect]
     Active Substance: EVEROLIMUS
     Dosage: 4 MG, QD
     Route: 048

REACTIONS (9)
  - Muscle spasms [Unknown]
  - Obsessive-compulsive disorder [Unknown]
  - Nausea [Unknown]
  - Decreased appetite [Unknown]
  - Drug level decreased [Unknown]
  - Neoplasm progression [Not Recovered/Not Resolved]
  - Depression [Unknown]
  - Immunosuppression [Not Recovered/Not Resolved]
  - Diarrhoea [Unknown]
